FAERS Safety Report 17875130 (Version 1)
Quarter: 2020Q2

REPORT INFORMATION
  Report Type: Spontaneous
  Country: FR (occurrence: FR)
  Receive Date: 20200609
  Receipt Date: 20200609
  Transmission Date: 20200714
  Serious: Yes (Other)
  Sender: FDA-Public Use
  Company Number: FR-TEVA-2020-FR-1244630

PATIENT
  Age: 38 Year
  Sex: Female

DRUGS (1)
  1. TRAMADOL BASE [Suspect]
     Active Substance: TRAMADOL
     Dosage: 150 MG
     Route: 048
     Dates: start: 2014, end: 20191112

REACTIONS (1)
  - Drug dependence [Not Recovered/Not Resolved]

NARRATIVE: CASE EVENT DATE: 2014
